FAERS Safety Report 8922715 (Version 4)
Quarter: 2012Q4

REPORT INFORMATION
  Report Type: 
  Country: CO (occurrence: CO)
  Receive Date: 20121123
  Receipt Date: 20121217
  Transmission Date: 20130627
  Serious: Yes (Other)
  Sender: FDA-Public Use
  Company Number: PHHY2012CO105362

PATIENT
  Age: 70 Year
  Sex: Female

DRUGS (3)
  1. EXELON PATCH [Suspect]
     Indication: DEMENTIA ALZHEIMER^S TYPE
     Dosage: 4.6 mg/24 hr
     Route: 062
     Dates: start: 201208
  2. EXELON PATCH [Suspect]
     Dosage: 9.5 mg/24 hr
     Route: 062
     Dates: end: 20121030
  3. MEMANTINE HYDROCHLORIDE [Suspect]
     Indication: DEMENTIA ALZHEIMER^S TYPE
     Dosage: 10 mg, UNK

REACTIONS (4)
  - General physical health deterioration [Not Recovered/Not Resolved]
  - Condition aggravated [Unknown]
  - Hallucination [Recovering/Resolving]
  - Stereotypy [Not Recovered/Not Resolved]
